FAERS Safety Report 19020747 (Version 1)
Quarter: 2021Q1

REPORT INFORMATION
  Report Type: Spontaneous
  Country: FR (occurrence: FR)
  Receive Date: 20210317
  Receipt Date: 20210317
  Transmission Date: 20210420
  Serious: Yes (Death)
  Sender: FDA-Public Use
  Company Number: FR-TEVA-2021-FR-1889337

PATIENT
  Age: 49 Year
  Sex: Male

DRUGS (1)
  1. MODAFINIL. [Suspect]
     Active Substance: MODAFINIL
     Dosage: NP
     Route: 065

REACTIONS (2)
  - Drug abuse [Fatal]
  - Carbon monoxide poisoning [Fatal]
